FAERS Safety Report 9220805 (Version 1)
Quarter: 2013Q2

REPORT INFORMATION
  Report Type: Spontaneous
  Country: GB (occurrence: GB)
  Receive Date: 20130409
  Receipt Date: 20130409
  Transmission Date: 20140414
  Serious: Yes (Life-Threatening, Hospitalization)
  Sender: FDA-Public Use
  Company Number: GB-TEVA-396234ISR

PATIENT
  Age: 74 Year
  Sex: Male

DRUGS (1)
  1. DICLOFENAC [Suspect]
     Indication: OSTEOARTHRITIS
     Dosage: 100 MILLIGRAM DAILY; 50 MG, BID
     Route: 048
     Dates: start: 20090911, end: 20111106

REACTIONS (1)
  - Aortic aneurysm rupture [Recovered/Resolved]
